FAERS Safety Report 15625098 (Version 3)
Quarter: 2018Q4

REPORT INFORMATION
  Report Type: Spontaneous
  Country: US (occurrence: US)
  Receive Date: 20181116
  Receipt Date: 20181226
  Transmission Date: 20190205
  Serious: Yes (Hospitalization)
  Sender: FDA-Public Use
  Company Number: US-CIPLA LTD.-2018US22768

PATIENT

DRUGS (9)
  1. LAMOTRIGINE. [Suspect]
     Active Substance: LAMOTRIGINE
     Indication: SEIZURE
     Dosage: 1 DF, BID (ONE IN THE MORNING AND ONE IN THE NIGHT)
     Route: 048
     Dates: start: 20180716
  2. QUETIAPINE. [Concomitant]
     Active Substance: QUETIAPINE
     Indication: ANXIETY DISORDER
     Dosage: 1 DF, BID (1 TABLET IN THE MORNING AND 1 TABLET IN THE EVENING)
     Route: 065
     Dates: start: 2011
  3. LAMOTRIGINE. [Suspect]
     Active Substance: LAMOTRIGINE
     Dosage: UNK, BID (1 AND HALF TABLETS IN THE MORNING AND 1 AND HALF TABLETS IN THE NIGHT)
     Route: 048
  4. ONFI [Concomitant]
     Active Substance: CLOBAZAM
     Dosage: 10 MG, (10 MG IN THE MORNING, 10 MG IN THE AFTERNOON AND 20 MG IN THE NIGHT WHEN NOT ON LAMOTRIGINE)
     Route: 065
  5. LAMOTRIGINE. [Suspect]
     Active Substance: LAMOTRIGINE
     Dosage: 2 DF, BID (2 TABLETS IN THE MORNING AND 2 TABLETS IN THE NIGHT)
     Route: 048
     Dates: end: 20180816
  6. ONFI [Concomitant]
     Active Substance: CLOBAZAM
     Indication: SEIZURE
     Dosage: 10 MG, 20 MG IN THE MORNING, 20 MG IN THE AFTERNOON, 30 MG IN NIGHT WHEN ON LAMOTRIGINE 25 MG TABLET
     Route: 065
  7. DIVALPROEX [Concomitant]
     Active Substance: DIVALPROEX SODIUM
     Indication: SEIZURE
     Dosage: 7 DF, BID (7 CAPSULES IN THE MORNING AND 7 CAPSULES IN THE NIGHT)
     Route: 065
  8. SERTRALINE [Concomitant]
     Active Substance: SERTRALINE HYDROCHLORIDE
     Indication: ANXIETY DISORDER
     Dosage: 2 TABLETS IN THE MORNING AND 1 TABLET IN THE NIGHT
     Route: 065
     Dates: start: 2011
  9. CLONAZEPAM. [Concomitant]
     Active Substance: CLONAZEPAM
     Indication: ANXIETY DISORDER
     Dosage: 1 TABLET IN THE MORNING AND 2 TABLETS IN THE EVENING
     Route: 065

REACTIONS (16)
  - Coordination abnormal [Recovering/Resolving]
  - Cough [Unknown]
  - Insomnia [Recovering/Resolving]
  - Constipation [Recovering/Resolving]
  - Somnolence [Recovering/Resolving]
  - Pneumonia aspiration [Recovered/Resolved]
  - Muscular weakness [Recovering/Resolving]
  - Hypersomnia [Recovering/Resolving]
  - Pain [Recovering/Resolving]
  - Dehydration [Unknown]
  - Fatigue [Recovering/Resolving]
  - Decreased appetite [Recovering/Resolving]
  - Saliva altered [Recovering/Resolving]
  - Dysphagia [Recovering/Resolving]
  - Rash [Not Recovered/Not Resolved]
  - Agitation [Recovering/Resolving]

NARRATIVE: CASE EVENT DATE: 201807
